FAERS Safety Report 10068810 (Version 1)
Quarter: 2014Q2

REPORT INFORMATION
  Report Type: Spontaneous
  Country: US (occurrence: US)
  Receive Date: 20140409
  Receipt Date: 20140409
  Transmission Date: 20141212
  Serious: Yes (Hospitalization, Other)
  Sender: FDA-Public Use
  Company Number: PHHY2014US039881

PATIENT
  Age: 71 Year
  Sex: Male

DRUGS (5)
  1. OXALIPLATIN [Suspect]
     Indication: COLON CANCER METASTATIC
  2. 5-FLUOROURACIL [Suspect]
     Indication: COLON CANCER METASTATIC
  3. IRINOTECAN [Suspect]
     Indication: ADENOCARCINOMA OF COLON
  4. LEUCOVORIN CALCIUM [Suspect]
     Indication: ADENOCARCINOMA OF COLON
  5. AVASTIN [Suspect]
     Indication: ADENOCARCINOMA OF COLON

REACTIONS (11)
  - Gastrointestinal obstruction [Unknown]
  - Adenocarcinoma [Unknown]
  - Head and neck cancer metastatic [Unknown]
  - Metastases to lymph nodes [Unknown]
  - Metastases to central nervous system [Unknown]
  - Metastases to lung [Unknown]
  - Oesophagitis [Unknown]
  - Stomatitis [Recovered/Resolved]
  - Mucosal inflammation [Recovered/Resolved]
  - Nausea [Unknown]
  - Weight decreased [Unknown]
